FAERS Safety Report 4629518-3 (Version None)
Quarter: 2005Q2

REPORT INFORMATION
  Report Type: 
  Country: None (occurrence: None)
  Receive Date: 20050405
  Receipt Date: 20050325
  Transmission Date: 20051028
  Serious: Yes (Hospitalization)
  Sender: FDA-Public Use
  Company Number: US-2005-004362

PATIENT
  Age: 47 Year
  Sex: Male

DRUGS (12)
  1. BETASERON [Suspect]
     Indication: RELAPSING-REMITTING MULTIPLE SCLEROSIS
     Dosage: EVERY 2D, SUBCUTANEOUS
     Route: 058
     Dates: start: 20020926
  2. CRESTOR /NET/ (ROSUVASTATIN CALCIUM) [Concomitant]
  3. AVANDAMET (ROSIGLITAZONE MALEATE, METFORMIN HYDROCHLORIDE) [Concomitant]
  4. ALLOPURINOL [Concomitant]
  5. HYDROCHLOROTHIAZIDE [Concomitant]
  6. TRILEPTAL [Concomitant]
  7. TRAMADOL HCL [Concomitant]
  8. LISINOPRIL [Concomitant]
  9. ASPIRIN [Concomitant]
  10. GEMFIBROZIL [Concomitant]
  11. AMITRIPTYLINE HCL [Concomitant]
  12. RISPERDAL [Concomitant]

REACTIONS (3)
  - DISTURBANCE IN ATTENTION [None]
  - DRUG INTERACTION [None]
  - MEMORY IMPAIRMENT [None]
